FAERS Safety Report 10874573 (Version 1)
Quarter: 2015Q1

REPORT INFORMATION
  Report Type: Spontaneous
  Country: CH (occurrence: None)
  Receive Date: 20150224
  Receipt Date: 20150224
  Transmission Date: 20150721
  Serious: Yes (Other)
  Sender: FDA-Public Use
  Company Number: 20150084

PATIENT
  Age: 76 Year
  Sex: Male

DRUGS (8)
  1. DIOVAN [Concomitant]
     Active Substance: VALSARTAN
  2. VENOFER [Suspect]
     Active Substance: IRON SUCROSE
     Indication: ANAEMIA
     Dates: end: 20140820
  3. AMYLOFER (IRON III (HYDROXIDE POLYMALTOSE COMPLEXT)) [Suspect]
     Active Substance: IRON POLYMALTOSE
     Indication: ANAEMIA
     Dates: end: 20140820
  4. APRESOLINE HYDROCHLORIDE [Concomitant]
     Active Substance: HYDRALAZINE HYDROCHLORIDE
  5. CARVEDILOL. [Concomitant]
     Active Substance: CARVEDILOL
  6. MALTOFER (IRON POLYMALTOSE) [Suspect]
     Active Substance: IRON POLYMALTOSE
     Indication: ANAEMIA
     Dates: end: 20140820
  7. ALLOPURINOL. [Concomitant]
     Active Substance: ALLOPURINOL
  8. LASIX [Concomitant]
     Active Substance: FUROSEMIDE

REACTIONS (2)
  - Renal cell carcinoma [None]
  - Drug ineffective [None]

NARRATIVE: CASE EVENT DATE: 201405
